FAERS Safety Report 16997619 (Version 2)
Quarter: 2020Q1

REPORT INFORMATION
  Report Type: Spontaneous
  Country: US (occurrence: US)
  Receive Date: 20191105
  Receipt Date: 20200206
  Transmission Date: 20200409
  Serious: No
  Sender: FDA-Public Use
  Company Number: US-RADIUS HEALTH INC.-2019US002696

PATIENT
  Age: 66 Year
  Sex: Female

DRUGS (3)
  1. TYMLOS [Suspect]
     Active Substance: ABALOPARATIDE
     Indication: OSTEOPOROSIS POSTMENOPAUSAL
     Dosage: 80MCG, QD
     Route: 058
     Dates: start: 20190715, end: 20190806
  2. AMLODIPINE [Concomitant]
     Active Substance: AMLODIPINE BESYLATE
     Indication: PRODUCT USED FOR UNKNOWN INDICATION
     Dosage: UNK
     Dates: start: 201911
  3. TYMLOS [Suspect]
     Active Substance: ABALOPARATIDE
     Dosage: 80 MCG, QD
     Route: 058
     Dates: start: 20190815

REACTIONS (12)
  - Blister [Unknown]
  - Heart rate increased [Unknown]
  - Abdominal distension [Unknown]
  - Asthenia [Unknown]
  - Pruritus [Unknown]
  - Rash [Unknown]
  - Headache [Unknown]
  - Dizziness [Unknown]
  - Injection site pain [Unknown]
  - Limb discomfort [Unknown]
  - Blister rupture [Unknown]
  - Abdominal pain [Unknown]

NARRATIVE: CASE EVENT DATE: 201907
